FAERS Safety Report 7854182-X (Version None)
Quarter: 2011Q4

REPORT INFORMATION
  Report Type: 
  Country: None (occurrence: None)
  Receive Date: 20111026
  Receipt Date: 20111014
  Transmission Date: 20120403
  Serious: Yes (Other)
  Sender: FDA-Public Use
  Company Number: US-BAYER-2011-099688

PATIENT
  Sex: Female

DRUGS (3)
  1. DROSPIRENONE AND ETHINYL ESTRADIOL [Suspect]
     Dosage: UNK
     Route: 048
     Dates: start: 20040101
  2. YASMIN [Suspect]
     Dosage: UNK
     Route: 048
     Dates: start: 20040101
  3. YAZ [Suspect]
     Dosage: UNK
     Route: 048
     Dates: start: 20040101

REACTIONS (6)
  - EMOTIONAL DISTRESS [None]
  - ANXIETY [None]
  - PAIN [None]
  - MENTAL DISORDER [None]
  - GALLBLADDER DISORDER [None]
  - INJURY [None]
